FAERS Safety Report 8546847-1 (Version None)
Quarter: 2012Q3

REPORT INFORMATION
  Report Type: 
  Country: None (occurrence: None)
  Receive Date: 20120727
  Receipt Date: 20110729
  Transmission Date: 20120928
  Serious: Yes (Disabling, Other)
  Sender: FDA-Public Use
  Company Number: DE-ALLERGAN-1016210US

PATIENT
  Age: 62 Year
  Sex: Female

DRUGS (1)
  1. OZURDEX [Suspect]
     Indication: RETINAL VEIN OCCLUSION
     Dosage: 0.7 MG, SINGLE
     Dates: start: 20101021, end: 20101021

REACTIONS (4)
  - CYSTOID MACULAR OEDEMA [None]
  - ENDOPHTHALMITIS [None]
  - VITREOUS HAEMORRHAGE [None]
  - MACULAR HOLE [None]
